FAERS Safety Report 8608477-2 (Version None)
Quarter: 2012Q3

REPORT INFORMATION
  Report Type: 
  Country: None (occurrence: None)
  Receive Date: 20120808
  Receipt Date: 20120724
  Transmission Date: 20120928
  Serious: Yes (Hospitalization)
  Sender: FDA-Public Use
  Company Number: LTI2012A00122

PATIENT
  Age: 89 Year
  Sex: Female

DRUGS (15)
  1. LANSOPRAZOLE [Suspect]
     Indication: NAUSEA
     Dosage: 15 MG (15 MG, 1 IN 1 D) SUBLINGUAL
     Route: 060
     Dates: start: 20120418, end: 20120430
  2. LANSOPRAZOLE [Suspect]
     Indication: ABDOMINAL PAIN UPPER
     Dosage: 15 MG (15 MG, 1 IN 1 D) SUBLINGUAL
     Route: 060
     Dates: start: 20120418, end: 20120430
  3. LEVOTHYROXINE SODIUM [Concomitant]
  4. VITALOGINK (GINKGO BILOBA) [Concomitant]
  5. PERINDOPRIL ERBUMINE [Concomitant]
  6. IMOVANE (ZOPICLONE) [Concomitant]
  7. COUMADIN [Concomitant]
  8. AROMASIN [Concomitant]
  9. TOCOPHEROL (TOCOPHEROL) [Concomitant]
  10. GAVISCON [Concomitant]
  11. CORDARONE [Concomitant]
  12. FUROSEMIDE [Concomitant]
  13. AMLODIPINE [Concomitant]
  14. DIGOXIN [Concomitant]
  15. XANAX [Concomitant]

REACTIONS (10)
  - PURPURA [None]
  - WOUND COMPLICATION [None]
  - GAIT DISTURBANCE [None]
  - HAEMATURIA [None]
  - PETECHIAE [None]
  - SKIN ULCER [None]
  - HENOCH-SCHONLEIN PURPURA [None]
  - RENAL DISORDER [None]
  - PROTEINURIA [None]
  - ECCHYMOSIS [None]
